FAERS Safety Report 16757242 (Version 1)
Quarter: 2019Q3

REPORT INFORMATION
  Report Type: Spontaneous
  Country: US (occurrence: US)
  Receive Date: 20190829
  Receipt Date: 20190829
  Transmission Date: 20191005
  Serious: No
  Sender: FDA-Public Use
  Company Number: US-ASTRAZENECA-2019SF12259

PATIENT
  Sex: Male

DRUGS (2)
  1. BYDUREON BCISE [Suspect]
     Active Substance: EXENATIDE
     Indication: TYPE 2 DIABETES MELLITUS
     Route: 058
     Dates: start: 20190722
  2. TESTOSTERONE. [Concomitant]
     Active Substance: TESTOSTERONE
     Route: 030
     Dates: start: 20190722

REACTIONS (3)
  - Hypoaesthesia [Unknown]
  - Dysuria [Unknown]
  - Malaise [Unknown]
